FAERS Safety Report 4397116-5 (Version None)
Quarter: 2004Q3

REPORT INFORMATION
  Report Type: 
  Country: None (occurrence: None)
  Receive Date: 20040709
  Receipt Date: 20040301
  Transmission Date: 20050211
  Serious: Yes (Other)
  Sender: FDA-Public Use
  Company Number: 2004EN000065

PATIENT
  Age: 50 Year
  Sex: Female
  Weight: 61.2 kg

DRUGS (43)
  1. ABELCET [Suspect]
     Indication: BRONCHOPULMONARY ASPERGILLOSIS
     Dosage: 5 MG/KG; QD; IV
     Route: 042
     Dates: start: 20040126, end: 20040226
  2. CYTARABINE [Concomitant]
  3. PLATELETS [Concomitant]
  4. BLOOD CELLS, PACKED HUMAN [Concomitant]
  5. OMEPRAZOLE [Concomitant]
  6. NEUPOGEN [Concomitant]
  7. CIPROFLOXACIN [Concomitant]
  8. FAMCICLOVIR [Concomitant]
  9. PIPERACILLIN SODIUM / TAZOBACTAM SODIUM [Concomitant]
  10. NYSTATIN [Concomitant]
  11. MINOVRAL [Concomitant]
  12. OVRAL [Concomitant]
  13. METRONIDAZOLE [Concomitant]
  14. ATENOLOL [Concomitant]
  15. VANCOMYCIN [Concomitant]
  16. BENADRYL ^WARNER-LAMBERT^         /USA/ [Concomitant]
  17. FLUCONAZOLE [Concomitant]
  18. VITAMIN K TAB [Concomitant]
  19. AZITHROMYCIN [Concomitant]
  20. SLOW-K [Concomitant]
  21. TYLENOL [Concomitant]
  22. SODIUM CHLORIDE 0.9% [Concomitant]
  23. DEMEROL [Concomitant]
  24. GRANISETRON [Concomitant]
  25. MAXERAN [Concomitant]
  26. DITRPAN [Concomitant]
  27. DOMPERIDONE [Concomitant]
  28. MORPHINE [Concomitant]
  29. FAMCICLOVIR [Concomitant]
  30. ATIVAN [Concomitant]
  31. EMLA [Concomitant]
  32. ATIVAN [Concomitant]
  33. CODEINE [Concomitant]
  34. GRAVOL TAB [Concomitant]
  35. OVAL DROPS [Concomitant]
  36. PROCHLORPERAZINE [Concomitant]
  37. KCL TAB [Concomitant]
  38. OXYGEN [Concomitant]
  39. MIDAZOLAM [Concomitant]
  40. LIDOCAINE [Concomitant]
  41. NON-IONIC CONTRAST [Concomitant]
  42. OPTIRAY 160 [Concomitant]
  43. GADOLINIUM [Concomitant]

REACTIONS (6)
  - ERYTHEMA MULTIFORME [None]
  - FEBRILE NEUTROPENIA [None]
  - OEDEMA PERIPHERAL [None]
  - RASH FOLLICULAR [None]
  - RASH GENERALISED [None]
  - SKIN DESQUAMATION [None]
